FAERS Safety Report 22334401 (Version 1)
Quarter: 2023Q2

REPORT INFORMATION
  Report Type: Spontaneous
  Country: AT (occurrence: AT)
  Receive Date: 20230517
  Receipt Date: 20230517
  Transmission Date: 20230721
  Serious: Yes (Other)
  Sender: FDA-Public Use
  Company Number: AT-ABBVIE-4765932

PATIENT
  Sex: Female
  Weight: 80 kg

DRUGS (10)
  1. HUMIRA [Suspect]
     Active Substance: ADALIMUMAB
     Indication: Rheumatoid arthritis
     Dosage: PROBABLE FREQUENCY/DOSING: 40MG/0.4 EVERY OTHER WEEK.
     Route: 058
     Dates: start: 2012, end: 2020
  2. HUMIRA [Suspect]
     Active Substance: ADALIMUMAB
     Route: 058
     Dates: start: 202102
  3. ENBREL [Concomitant]
     Active Substance: ETANERCEPT
     Indication: Product used for unknown indication
     Route: 065
     Dates: start: 201006
  4. RILMENIDINE [Concomitant]
     Active Substance: RILMENIDINE
     Indication: Product used for unknown indication
     Route: 065
  5. DOXAZOSIN MESYLATE [Concomitant]
     Active Substance: DOXAZOSIN MESYLATE
     Indication: Product used for unknown indication
     Route: 065
  6. CARVEDILOL LPH [Concomitant]
     Indication: Product used for unknown indication
     Route: 065
  7. BAYPRESS [Concomitant]
     Active Substance: NITRENDIPINE
     Indication: Haemodialysis
     Route: 065
  8. SEVELAMER SANDOZ [Concomitant]
     Indication: Product used for unknown indication
     Route: 065
  9. Novalgin [Concomitant]
     Indication: Product used for unknown indication
     Route: 065
  10. Prednisolone nycomed [Concomitant]
     Indication: Product used for unknown indication
     Route: 065

REACTIONS (6)
  - Haemodialysis [Unknown]
  - Chronic kidney disease [Unknown]
  - Hypercholesterolaemia [Unknown]
  - Synovial cyst [Unknown]
  - Hyperuricaemia [Unknown]
  - Cholelithiasis [Unknown]

NARRATIVE: CASE EVENT DATE: 20131101
